FAERS Safety Report 23064745 (Version 1)
Quarter: 2023Q4

REPORT INFORMATION
  Report Type: Spontaneous
  Country: US (occurrence: None)
  Receive Date: 20231012
  Receipt Date: 20231012
  Transmission Date: 20240110
  Serious: Yes (Other)
  Sender: FDA-Public Use
  Company Number: None

PATIENT
  Age: 49 Year
  Sex: Male
  Weight: 83 kg

DRUGS (1)
  1. NUWIQ [Suspect]
     Active Substance: ANTIHEMOPHILIC FACTOR, HUMAN RECOMBINANT
     Indication: Factor VIII deficiency
     Dosage: FREQUENCY : 3 TIMES A WEEK;?
     Route: 042
     Dates: start: 20231011, end: 20231011

REACTIONS (3)
  - Facial paralysis [None]
  - Coordination abnormal [None]
  - Dysarthria [None]

NARRATIVE: CASE EVENT DATE: 20231011
